FAERS Safety Report 22086274 (Version 1)
Quarter: 2023Q1

REPORT INFORMATION
  Report Type: Spontaneous
  Country: US (occurrence: US)
  Receive Date: 20230310
  Receipt Date: 20230310
  Transmission Date: 20230418
  Serious: Yes (Other)
  Sender: FDA-Public Use
  Company Number: US-009507513-2303USA003024

PATIENT
  Sex: Female

DRUGS (2)
  1. KEYTRUDA [Suspect]
     Active Substance: PEMBROLIZUMAB
     Indication: Renal cancer
  2. LENVATINIB MESYLATE [Suspect]
     Active Substance: LENVATINIB MESYLATE
     Indication: Renal cancer
     Dosage: 10 MILLIGRAM, QD
     Route: 048

REACTIONS (5)
  - Malignant neoplasm progression [Unknown]
  - Therapeutic product effect decreased [Unknown]
  - Cancer pain [Unknown]
  - Blood calcium increased [Unknown]
  - Incorrect dose administered [Unknown]
